FAERS Safety Report 18548902 (Version 2)
Quarter: 2020Q4

REPORT INFORMATION
  Report Type: Spontaneous
  Country: BG (occurrence: BG)
  Receive Date: 20201125
  Receipt Date: 20201209
  Transmission Date: 20210114
  Serious: Yes (Death, Hospitalization)
  Sender: FDA-Public Use
  Company Number: BG-BAXTER-2020BAX023542

PATIENT
  Age: 35 Year
  Sex: Male

DRUGS (3)
  1. BISEPTOL [Concomitant]
     Active Substance: SULFAMETHOXAZOLE\TRIMETHOPRIM
     Indication: ANTIBIOTIC THERAPY
     Route: 065
  2. CEFEPIME [Concomitant]
     Active Substance: CEFEPIME HYDROCHLORIDE
     Indication: ANTIBIOTIC THERAPY
     Route: 065
  3. METRIS 5 MG/ML SOLUTION FOR INFUSION [Suspect]
     Active Substance: METRONIDAZOLE
     Indication: ANTIBIOTIC THERAPY
     Route: 065

REACTIONS (4)
  - Cardiovascular insufficiency [Fatal]
  - Cachexia [Fatal]
  - Respiratory failure [Fatal]
  - Death [Fatal]
